FAERS Safety Report 5198427-6 (Version None)
Quarter: 2006Q4

REPORT INFORMATION
  Report Type: 
  Country: None (occurrence: None)
  Receive Date: 20061229
  Receipt Date: 20061214
  Transmission Date: 20070319
  Serious: Yes (Other)
  Sender: FDA-Public Use
  Company Number: 06-001509

PATIENT
  Age: 13 Year
  Sex: Female

DRUGS (1)
  1. PYRIDIUM(PHENAZOPYRIDINE HYDROCHLORIDE) TABLET, 100MG [Suspect]
     Dosage: 2000 MG, SINGLE, ORAL
     Route: 048

REACTIONS (4)
  - OVERDOSE [None]
  - PERITONEAL DIALYSIS [None]
  - RENAL FAILURE ACUTE [None]
  - RENAL TUBULAR NECROSIS [None]
